FAERS Safety Report 8433227-2 (Version None)
Quarter: 2012Q2

REPORT INFORMATION
  Report Type: 
  Country: None (occurrence: None)
  Receive Date: 20120613
  Receipt Date: 20120611
  Transmission Date: 20120825
  Serious: Yes (Other)
  Sender: FDA-Public Use
  Company Number: CA-ROCHE-1077542

PATIENT

DRUGS (2)
  1. COUMADIN [Concomitant]
  2. RITUXAN [Suspect]
     Indication: RHEUMATOID ARTHRITIS

REACTIONS (1)
  - INTERNATIONAL NORMALISED RATIO INCREASED [None]
